FAERS Safety Report 5908618-1 (Version None)
Quarter: 2008Q4

REPORT INFORMATION
  Report Type: 
  Country: None (occurrence: None)
  Receive Date: 20081006
  Receipt Date: 20080928
  Transmission Date: 20090506
  Serious: Yes (Other)
  Sender: FDA-Public Use
  Company Number: JP-JNJFOC-20080903557

PATIENT
  Sex: Male

DRUGS (10)
  1. ITRIZOLE [Suspect]
     Indication: ONYCHOMYCOSIS
     Route: 048
  2. AMARYL [Concomitant]
     Indication: DIABETES MELLITUS
     Dosage: PERORAL MEDICINE
     Route: 048
  3. LIPITOR [Concomitant]
     Indication: HYPERLIPIDAEMIA
     Dosage: PERORAL MEDICINE
     Route: 048
  4. ASPIRIN [Concomitant]
     Indication: MYOCARDIAL INFARCTION
     Dosage: PERORAL MEDICINE
     Route: 048
  5. DIOVAN [Concomitant]
     Indication: MYOCARDIAL INFARCTION
     Dosage: PERORAL MEDICINE
     Route: 048
  6. LASIX [Concomitant]
     Indication: MYOCARDIAL INFARCTION
     Route: 048
  7. PANALDINE [Concomitant]
     Indication: MYOCARDIAL INFARCTION
     Dosage: PERORAL MEDICINE
     Route: 048
  8. MAGMITT [Concomitant]
     Indication: CONSTIPATION
     Dosage: PERORAL MEDICINE
     Route: 048
  9. BASEN [Concomitant]
     Indication: DIABETES MELLITUS
     Dosage: PERORAL MEDICINE
     Route: 048
  10. MELBIN [Concomitant]
     Indication: DIABETES MELLITUS
     Route: 048

REACTIONS (2)
  - DRUG ERUPTION [None]
  - PYREXIA [None]
